FAERS Safety Report 16111051 (Version 1)
Quarter: 2019Q1

REPORT INFORMATION
  Report Type: Spontaneous
  Country: US (occurrence: US)
  Receive Date: 20190220
  Receipt Date: 20190220
  Transmission Date: 20190418
  Serious: No
  Sender: FDA-Public Use
  Company Number: None

PATIENT
  Age: 87 Year
  Sex: Female

DRUGS (1)
  1. TADALAFIL TAB 20MG [Suspect]
     Active Substance: TADALAFIL
     Dosage: ?          OTHER DOSE:20 AM AND 10 PM;?
     Route: 048
     Dates: start: 201808

REACTIONS (1)
  - Off label use [None]

NARRATIVE: CASE EVENT DATE: 20190220
